FAERS Safety Report 15200728 (Version 1)
Quarter: 2018Q3

REPORT INFORMATION
  Report Type: Spontaneous
  Country: US (occurrence: US)
  Receive Date: 20180726
  Receipt Date: 20180726
  Transmission Date: 20181010
  Serious: No
  Sender: FDA-Public Use
  Company Number: US-SUN PHARMACEUTICAL INDUSTRIES LTD-2017US-161061

PATIENT
  Age: 51 Year
  Sex: Male

DRUGS (1)
  1. TESTOSTERONE. [Suspect]
     Active Substance: TESTOSTERONE
     Indication: HORMONE REPLACEMENT THERAPY
     Dosage: 1 ML, 1/WEEK
     Route: 065
     Dates: start: 201712, end: 201712

REACTIONS (2)
  - Product gel formation [Unknown]
  - Drug administration error [Unknown]

NARRATIVE: CASE EVENT DATE: 201712
